FAERS Safety Report 9157996 (Version 1)
Quarter: 2013Q1

REPORT INFORMATION
  Report Type: Spontaneous
  Country: US (occurrence: None)
  Receive Date: 20130204
  Receipt Date: 20130204
  Transmission Date: 20140127
  Serious: Yes (Other)
  Sender: FDA-Public Use
  Company Number: IPC201301-000015

PATIENT
  Age: 81 Year
  Sex: Male

DRUGS (12)
  1. FUROSEMIDE (FUROSEMIDE) [Suspect]
  2. SERTRALINE (SERTRALINE) (SERTRALINE) [Suspect]
  3. SPIRONOLACTONE (SPIRONOLACTONE) [Suspect]
  4. GLYBURIDE [Suspect]
  5. ALBUTEROL [Suspect]
  6. SALMETEROL [Suspect]
  7. BECLOMETHASONE DIPROPIONATE [Suspect]
  8. MONTELUKAST [Suspect]
  9. CLONAZEPAM (CLONAZEPAM) (CLONAZEPAM) [Suspect]
  10. OLANZAPINE (OLANZAPINE) [Suspect]
  11. TRAZODONE (TRAZODONE) (TRAZODONE) [Suspect]
  12. TRIMETHOPRIM/SULFAMETHOXAZOLE [Suspect]

REACTIONS (3)
  - Renal failure acute [None]
  - Drug eruption [None]
  - Dialysis [None]
